FAERS Safety Report 15526580 (Version 1)
Quarter: 2018Q4

REPORT INFORMATION
  Report Type: Spontaneous
  Country: US (occurrence: US)
  Receive Date: 20181018
  Receipt Date: 20181018
  Transmission Date: 20190205
  Serious: Yes (Other)
  Sender: FDA-Public Use
  Company Number: US-009507513-1810USA005449

PATIENT
  Sex: Female

DRUGS (10)
  1. INTRON A [Suspect]
     Active Substance: INTERFERON ALFA-2B
     Dosage: (DOSE: 5 MU, TIW)
     Route: 058
     Dates: start: 20180927
  2. ATORVASTATIN [Concomitant]
     Active Substance: ATORVASTATIN
  3. INTRON A [Suspect]
     Active Substance: INTERFERON ALFA-2B
     Indication: MYCOSIS FUNGOIDES
     Dosage: STRENGHT: 10MU SDV (DOSE: 5 MU, TIW)
     Route: 058
     Dates: start: 20180927
  4. INTRON A [Suspect]
     Active Substance: INTERFERON ALFA-2B
     Dosage: (DOSE: 5 MU, TIW)
     Route: 058
     Dates: start: 20180927
  5. CYCLOBENZAPRINE HYDROCHLORIDE. [Concomitant]
     Active Substance: CYCLOBENZAPRINE HYDROCHLORIDE
  6. CLOBETASOL PROPIONATE. [Concomitant]
     Active Substance: CLOBETASOL PROPIONATE
  7. LEVOTHYROXINE SODIUM. [Concomitant]
     Active Substance: LEVOTHYROXINE SODIUM
  8. DICLOFENAC [Concomitant]
     Active Substance: DICLOFENAC
  9. METRONIDAZOLE. [Concomitant]
     Active Substance: METRONIDAZOLE
  10. TRIAMCINOLONE [Concomitant]
     Active Substance: TRIAMCINOLONE

REACTIONS (2)
  - Neutropenia [Unknown]
  - Product dose omission [Unknown]

NARRATIVE: CASE EVENT DATE: 2018
